FAERS Safety Report 5306618-6 (Version None)
Quarter: 2007Q2

REPORT INFORMATION
  Report Type: 
  Country: None (occurrence: None)
  Receive Date: 20070418
  Receipt Date: 20070402
  Transmission Date: 20071010
  Serious: Yes (Death)
  Sender: FDA-Public Use
  Company Number: 2007000580

PATIENT
  Age: 79 Year
  Sex: Male

DRUGS (4)
  1. ERLOTINIB (TABLET) [Suspect]
     Indication: NON-SMALL CELL LUNG CANCER
     Dosage: 150 MG (QD), ORAL
     Route: 048
     Dates: start: 20061103, end: 20061115
  2. GLICLAZIDE (GLICLAZIDE) [Concomitant]
  3. IRBESARTAN [Concomitant]
  4. ALMOR (AMLODIPINE BESILATE) [Concomitant]

REACTIONS (2)
  - PULMONARY EMBOLISM [None]
  - SUDDEN DEATH [None]
